FAERS Safety Report 5515748-5 (Version None)
Quarter: 2007Q4

REPORT INFORMATION
  Report Type: 
  Country: None (occurrence: None)
  Receive Date: 20071114
  Receipt Date: 20071108
  Transmission Date: 20080405
  Serious: Yes (Other)
  Sender: FDA-Public Use
  Company Number: PHFR2007GB03146

PATIENT
  Age: 55 Year
  Sex: Female
  Weight: 59 kg

DRUGS (2)
  1. ZOMETA [Suspect]
     Indication: METASTASES TO BONE
     Dosage: 4MG ONCE
     Route: 042
     Dates: start: 20070824
  2. LETROZOLE [Suspect]
     Indication: HORMONE THERAPY
     Dosage: 2.5MG/DAY
     Route: 048
     Dates: start: 20070612

REACTIONS (2)
  - EYE PAIN [None]
  - SCLERITIS [None]
